FAERS Safety Report 24236774 (Version 4)
Quarter: 2024Q4

REPORT INFORMATION
  Report Type: Spontaneous
  Country: DE (occurrence: DE)
  Receive Date: 20240822
  Receipt Date: 20241219
  Transmission Date: 20250114
  Serious: Yes (Hospitalization, Other)
  Sender: AUROBINDO
  Company Number: DE-BRISTOL-MYERS SQUIBB COMPANY-2024-123469

PATIENT
  Age: 65 Year
  Sex: Female
  Weight: 67 kg

DRUGS (24)
  1. CARBOPLATIN [Suspect]
     Active Substance: CARBOPLATIN
     Indication: Non-small cell lung cancer
     Dosage: UNK, 5 MG/MIN*ML
     Route: 042
     Dates: start: 20240724
  2. CARBOPLATIN [Suspect]
     Active Substance: CARBOPLATIN
     Dosage: UNK, 5 MG/MIN*ML
     Route: 042
     Dates: start: 20240814
  3. CARBOPLATIN [Suspect]
     Active Substance: CARBOPLATIN
     Dosage: UNK, 5 MG/MIN*ML
     Route: 042
     Dates: start: 20240904
  4. PEMETREXED [Suspect]
     Active Substance: PEMETREXED
     Indication: Non-small cell lung cancer
     Dosage: 500 MILLIGRAM/SQ. METER
     Route: 042
     Dates: start: 20240724
  5. NIVOLUMAB [Suspect]
     Active Substance: NIVOLUMAB
     Indication: Non-small cell lung cancer
     Dosage: 360 MILLIGRAM, EVERY 3 WEEK (21 DAYS/CYCLEFOR 3 CYCLE)
     Route: 042
     Dates: start: 20240724
  6. AMLODIPINE BESYLATE [Concomitant]
     Active Substance: AMLODIPINE BESYLATE
     Indication: Hypertension
     Dosage: 5 MILLIGRAM, ONCE A DAY
     Route: 048
     Dates: start: 2013
  7. CYANOCOBALAMIN [Concomitant]
     Active Substance: CYANOCOBALAMIN
     Indication: Supportive care
     Dosage: 1 MILLIGRAM, AS NECESSARY
     Route: 058
     Dates: start: 20240718
  8. CYANOCOBALAMIN [Concomitant]
     Active Substance: CYANOCOBALAMIN
     Indication: Prophylaxis
  9. DEXAMETHASONE [Concomitant]
     Active Substance: DEXAMETHASONE
     Indication: Prophylaxis
     Dosage: 4 MILLIGRAM, AS NECESSARY
     Route: 048
     Dates: start: 20240722
  10. DEXAMETHASONE [Concomitant]
     Active Substance: DEXAMETHASONE
     Indication: Supportive care
     Dosage: 8 MILLIGRAM, AS NECESSARY
     Route: 042
     Dates: start: 20240724
  11. DIMETHINDENE [Concomitant]
     Active Substance: DIMETHINDENE
     Indication: Supportive care
     Dosage: 4 MILLIGRAM, AS NECESSARY
     Route: 042
     Dates: start: 20240724
  12. DIMETHINDENE [Concomitant]
     Active Substance: DIMETHINDENE
     Indication: Prophylaxis
  13. IBUPROFEN [Concomitant]
     Active Substance: IBUPROFEN
     Indication: Supportive care
     Dosage: 400 MILLIGRAM, 3 TIMES A DAY
     Route: 048
     Dates: start: 202401
  14. IBUPROFEN [Concomitant]
     Active Substance: IBUPROFEN
     Indication: Prophylaxis
  15. METAMIZOL [Concomitant]
     Active Substance: METAMIZOLE SODIUM
     Indication: Prophylaxis
     Dosage: 500 MILLIGRAM, FOUR TIMES/DAY
     Route: 048
     Dates: start: 20240718
  16. METAMIZOL [Concomitant]
     Active Substance: METAMIZOLE SODIUM
     Indication: Supportive care
  17. ONDANSETRON [Concomitant]
     Active Substance: ONDANSETRON
     Indication: Prophylaxis
     Dosage: 8 MILLIGRAM, AS NECESSARY
     Route: 042
     Dates: start: 20240724
  18. ONDANSETRON [Concomitant]
     Active Substance: ONDANSETRON
     Indication: Supportive care
  19. RAMIPRIL [Concomitant]
     Active Substance: RAMIPRIL
     Indication: Hypertension
     Dosage: 5 MILLIGRAM, ONCE A DAY
     Route: 048
     Dates: start: 2013
  20. RANITIDINE [Concomitant]
     Active Substance: RANITIDINE
     Indication: Supportive care
     Dosage: 50 MILLIGRAM, AS NECESSARY
     Route: 042
     Dates: start: 20240724
  21. RANITIDINE [Concomitant]
     Active Substance: RANITIDINE
     Indication: Prophylaxis
  22. TORSEMIDE [Concomitant]
     Active Substance: TORSEMIDE
     Indication: Hypertension
     Dosage: 10 MILLIGRAM, ONCE A DAY
     Route: 048
     Dates: start: 2013
  23. PACLITAXEL [Concomitant]
     Active Substance: PACLITAXEL
     Indication: Non-small cell lung cancer
     Dosage: 175 MG/M2
     Route: 042
     Dates: start: 20240814
  24. PACLITAXEL [Concomitant]
     Active Substance: PACLITAXEL
     Dosage: 175 MG/M2
     Route: 042
     Dates: start: 20240904

REACTIONS (4)
  - Febrile neutropenia [Recovered/Resolved]
  - Urosepsis [Recovered/Resolved]
  - Escherichia infection [Recovered/Resolved]
  - Pruritus [Recovering/Resolving]

NARRATIVE: CASE EVENT DATE: 20240729
